FAERS Safety Report 12612278 (Version 2)
Quarter: 2016Q3

REPORT INFORMATION
  Report Type: Spontaneous
  Country: US (occurrence: US)
  Receive Date: 20160801
  Receipt Date: 20160829
  Transmission Date: 20161109
  Serious: Yes (Hospitalization)
  Sender: FDA-Public Use
  Company Number: GXBR2016US002360

PATIENT
  Age: 83 Year
  Sex: Male
  Weight: 86.17 kg

DRUGS (3)
  1. GABAPENTIN. [Concomitant]
     Active Substance: GABAPENTIN
     Indication: NEUROPATHY PERIPHERAL
     Dosage: 200 MG, BID
     Route: 048
     Dates: start: 2000
  2. EUCERIN                            /01160201/ [Concomitant]
     Active Substance: LANOLIN\MINERAL OIL\PETROLATUM
     Dosage: UNK DF, UNK
     Route: 061
  3. TRIAMCINOLONE ACETONIDE. [Suspect]
     Active Substance: TRIAMCINOLONE ACETONIDE
     Indication: CELLULITIS
     Dosage: 1 DF, BID
     Route: 061

REACTIONS (3)
  - Fall [Recovered/Resolved]
  - Neoplasm malignant [Recovered/Resolved]
  - Cellulitis [Recovered/Resolved]

NARRATIVE: CASE EVENT DATE: 201501
